FAERS Safety Report 26085530 (Version 1)
Quarter: 2025Q4

REPORT INFORMATION
  Report Type: Report from Study
  Country: SA (occurrence: SA)
  Receive Date: 20251125
  Receipt Date: 20251125
  Transmission Date: 20260118
  Serious: Yes (Other)
  Sender: TAKEDA
  Company Number: SA-TAKEDA-2025TUS103946

PATIENT
  Age: 4 Year
  Sex: Female

DRUGS (1)
  1. HUMAN IMMUNOGLOBULIN G [Suspect]
     Active Substance: HUMAN IMMUNOGLOBULIN G
     Indication: Primary immunodeficiency syndrome
     Dosage: 3.5 GRAM, Q2WEEKS
     Dates: start: 20250706

REACTIONS (4)
  - Accident at home [Unknown]
  - Multiple fractures [Unknown]
  - Lower limb fracture [Unknown]
  - Pelvic fracture [Unknown]

NARRATIVE: CASE EVENT DATE: 20251107
